FAERS Safety Report 7213878-3 (Version None)
Quarter: 2011Q1

REPORT INFORMATION
  Report Type: 
  Country: None (occurrence: None)
  Receive Date: 20110106
  Receipt Date: 20110103
  Transmission Date: 20110831
  Serious: Yes (Disabling, Other)
  Sender: FDA-Public Use
  Company Number: AR-ABBOTT-10P-007-0691664-00

PATIENT
  Age: 15 Year
  Sex: Female

DRUGS (2)
  1. SEVORANE LIQUID [Suspect]
     Indication: DIAGNOSTIC PROCEDURE
     Route: 055
     Dates: start: 20070101, end: 20070101
  2. REMIFENTANIL [Suspect]
     Indication: ANAESTHESIA
     Dates: start: 20070101, end: 20070101

REACTIONS (5)
  - ALTERED STATE OF CONSCIOUSNESS [None]
  - GASTRECTOMY [None]
  - APNOEA [None]
  - TRACHEOSTOMY [None]
  - CONFUSIONAL STATE [None]
